FAERS Safety Report 23366140 (Version 1)
Quarter: 2024Q1

REPORT INFORMATION
  Report Type: Spontaneous
  Country: CN (occurrence: CN)
  Receive Date: 20240104
  Receipt Date: 20240104
  Transmission Date: 20240410
  Serious: Yes (Other)
  Sender: FDA-Public Use
  Company Number: CN-BAYER-2024A001563

PATIENT
  Age: 84 Year
  Sex: Male
  Weight: 55 kg

DRUGS (2)
  1. AVELOX [Suspect]
     Active Substance: MOXIFLOXACIN HYDROCHLORIDE
     Indication: Respiratory tract infection
     Dosage: 0.4 G, QD
     Route: 048
     Dates: start: 20231225, end: 20231227
  2. AVELOX [Suspect]
     Active Substance: MOXIFLOXACIN HYDROCHLORIDE
     Indication: Pyrexia

REACTIONS (4)
  - Delirium [Recovered/Resolved]
  - Agitation [Recovered/Resolved]
  - Disorganised speech [Recovered/Resolved]
  - Initial insomnia [Recovered/Resolved]

NARRATIVE: CASE EVENT DATE: 20231201
